FAERS Safety Report 16472524 (Version 1)
Quarter: 2019Q2

REPORT INFORMATION
  Report Type: Spontaneous
  Country: FR (occurrence: FR)
  Receive Date: 20190625
  Receipt Date: 20190625
  Transmission Date: 20190711
  Serious: Yes (Other)
  Sender: FDA-Public Use
  Company Number: FR-ACCORD-134811

PATIENT
  Age: 50 Year
  Sex: Male

DRUGS (5)
  1. TERALITHE [Suspect]
     Active Substance: LITHIUM CARBONATE
     Indication: SCHIZOPHRENIA
     Dosage: STRENGTH: 400 MG, BREAKABLE TABLET EXTENDED RELEASE
     Route: 048
  2. MODECATE [Concomitant]
     Active Substance: FLUPHENAZINE DECANOATE
     Route: 030
     Dates: end: 20190314
  3. CLOZAPINE. [Suspect]
     Active Substance: CLOZAPINE
     Indication: SCHIZOPHRENIA
     Route: 048
     Dates: start: 20190314
  4. LOXAPAC [Concomitant]
     Active Substance: LOXAPINE
     Dosage: STRENGTH: 100 MG
     Route: 048
  5. AKINETON L.P. [Concomitant]
     Active Substance: BIPERIDEN
     Dosage: STRENGTH: 4 MG, SUSTAINED RELEASE COATED TABLET
     Route: 048

REACTIONS (1)
  - Lymphopenia [Recovering/Resolving]

NARRATIVE: CASE EVENT DATE: 20190321
